FAERS Safety Report 9187321 (Version 1)
Quarter: 2013Q1

REPORT INFORMATION
  Report Type: Spontaneous
  Country: ES (occurrence: ES)
  Receive Date: 20130325
  Receipt Date: 20130325
  Transmission Date: 20140127
  Serious: Yes (Hospitalization)
  Sender: FDA-Public Use
  Company Number: ES-ELI_LILLY_AND_COMPANY-ES201303008004

PATIENT
  Age: 89 Year
  Sex: Female

DRUGS (6)
  1. FORSTEO [Suspect]
     Indication: OSTEOPOROSIS
     Dosage: 20 UG, UNKNOWN
     Route: 058
     Dates: start: 2008
  2. INSULIN [Concomitant]
     Indication: DIABETES MELLITUS
     Dosage: UNK
  3. OMEPRAZOLE [Concomitant]
     Dosage: UNK
  4. ASTUDAL [Concomitant]
     Dosage: 5 MG, UNKNOWN
     Route: 065
     Dates: end: 20090110
  5. CICLOFALINA [Concomitant]
     Dosage: 800 DF, UNKNOWN
     Route: 065
     Dates: end: 20090110
  6. ISCOVER [Concomitant]
     Dosage: UNK, UNKNOWN
     Route: 065

REACTIONS (4)
  - Cerebral thrombosis [Recovered/Resolved with Sequelae]
  - Respiratory tract infection [Recovering/Resolving]
  - Thrombophlebitis [Unknown]
  - Mobility decreased [Not Recovered/Not Resolved]
